FAERS Safety Report 8959304 (Version 3)
Quarter: 2013Q1

REPORT INFORMATION
  Report Type: Spontaneous
  Country: US (occurrence: None)
  Receive Date: 20121128
  Receipt Date: 20130226
  Transmission Date: 20140127
  Serious: Yes (Other)
  Sender: FDA-Public Use
  Company Number: DKLU1086552

PATIENT
  Age: 10 Year
  Sex: Female

DRUGS (6)
  1. SABRIL (TABLET) (SABRIL) (VIGABATRIN) (500 MG, TABLET) [Suspect]
     Indication: INFANTILE SPASMS
     Route: 048
     Dates: start: 20100430, end: 20130113
  2. SABRIL (TABLET) (SABRIL) (VIGABATRIN) (500 MG, TABLET) [Suspect]
     Indication: TUBEROUS SCLEROSIS
     Route: 048
     Dates: start: 20100430, end: 20130113
  3. DEPAKOTE (VALPROATE SEMISODIUM) [Concomitant]
  4. BENZEL (RUFINAMIDE) [Concomitant]
  5. TOPAMAX (TOPIRAMATE) [Concomitant]
  6. LAMICTAL [Concomitant]

REACTIONS (1)
  - Eye degenerative disorder [None]
